FAERS Safety Report 5230502-X (Version None)
Quarter: 2007Q1

REPORT INFORMATION
  Report Type: 
  Country: None (occurrence: None)
  Receive Date: 20070202
  Receipt Date: 20070123
  Transmission Date: 20070707
  Serious: Yes (Hospitalization, Disabling)
  Sender: FDA-Public Use
  Company Number: 2006-01545

PATIENT
  Age: 38 Year

DRUGS (3)
  1. VELCADE [Suspect]
     Indication: MULTIPLE MYELOMA
     Dosage: INTRAVENOUS
     Route: 042
  2. DOXORUBICIN HCL [Suspect]
     Indication: MULTIPLE MYELOMA
  3. DEXAMETHASONE [Suspect]
     Indication: MULTIPLE MYELOMA

REACTIONS (5)
  - CATHETER RELATED COMPLICATION [None]
  - HEPARIN-INDUCED THROMBOCYTOPENIA [None]
  - HYPERCOAGULATION [None]
  - PERONEAL NERVE INJURY [None]
  - POLYNEUROPATHY [None]
